FAERS Safety Report 21337932 (Version 2)
Quarter: 2022Q4

REPORT INFORMATION
  Report Type: Spontaneous
  Country: NO (occurrence: NO)
  Receive Date: 20220915
  Receipt Date: 20221019
  Transmission Date: 20230113
  Serious: Yes (Hospitalization)
  Sender: FDA-Public Use
  Company Number: NO-ELI_LILLY_AND_COMPANY-NO202209002993

PATIENT
  Age: 44 Year
  Sex: Female
  Weight: 49 kg

DRUGS (3)
  1. ZYPREXA [Suspect]
     Active Substance: OLANZAPINE
     Indication: Psychotic disorder
     Dosage: 10 MG, DAILY
     Route: 065
     Dates: start: 20220810, end: 20220815
  2. ZYPREXA [Suspect]
     Active Substance: OLANZAPINE
     Dosage: UNK UNK, UNKNOWN
     Route: 065
  3. SUBUTEX [Concomitant]
     Active Substance: BUPRENORPHINE HYDROCHLORIDE
     Indication: Withdrawal syndrome
     Dosage: 8 MG, BID
     Route: 060
     Dates: start: 201612

REACTIONS (15)
  - Rhinorrhoea [Recovering/Resolving]
  - Lacrimation increased [Recovering/Resolving]
  - Keratosis pilaris [Recovering/Resolving]
  - Night sweats [Recovering/Resolving]
  - Urticaria [Recovering/Resolving]
  - Pruritus [Recovering/Resolving]
  - Oedema [Recovering/Resolving]
  - Rash [Recovering/Resolving]
  - Nightmare [Unknown]
  - Headache [Unknown]
  - Illusion [Recovered/Resolved with Sequelae]
  - Migraine [Recovered/Resolved with Sequelae]
  - Nausea [Recovered/Resolved with Sequelae]
  - Toothache [Recovered/Resolved with Sequelae]
  - Hypersensitivity [Unknown]

NARRATIVE: CASE EVENT DATE: 20220810
